FAERS Safety Report 21596564 (Version 1)
Quarter: 2022Q4

REPORT INFORMATION
  Report Type: Report from Study
  Country: US (occurrence: US)
  Receive Date: 20221115
  Receipt Date: 20221115
  Transmission Date: 20230113
  Serious: Yes (Disabling, Other)
  Sender: FDA-Public Use
  Company Number: US-MYLANLABS-2022M1124619

PATIENT

DRUGS (1)
  1. ZOLOFT [Suspect]
     Active Substance: SERTRALINE HYDROCHLORIDE
     Indication: Product used for unknown indication
     Dosage: UNK
     Route: 065

REACTIONS (9)
  - Disability [Unknown]
  - Dementia [Unknown]
  - Quality of life decreased [Unknown]
  - Blunted affect [Unknown]
  - Withdrawal syndrome [Unknown]
  - Overdose [Unknown]
  - Myalgia [Unknown]
  - Akathisia [Unknown]
  - Sexual dysfunction [Unknown]
